FAERS Safety Report 17973511 (Version 3)
Quarter: 2020Q4

REPORT INFORMATION
  Report Type: Report from Study
  Country: US (occurrence: US)
  Receive Date: 20200702
  Receipt Date: 20201207
  Transmission Date: 20210113
  Serious: No
  Sender: FDA-Public Use
  Company Number: NVSC2020US185370

PATIENT
  Sex: Female

DRUGS (1)
  1. MAYZENT [Suspect]
     Active Substance: SIPONIMOD
     Indication: MULTIPLE SCLEROSIS
     Dosage: 2 MG, QD (VIA MOUTH)
     Route: 048

REACTIONS (4)
  - Arthralgia [Recovered/Resolved]
  - Hypoaesthesia oral [Not Recovered/Not Resolved]
  - Diarrhoea [Recovered/Resolved]
  - Lip swelling [Not Recovered/Not Resolved]
